FAERS Safety Report 7321860-0 (Version None)
Quarter: 2011Q1

REPORT INFORMATION
  Report Type: 
  Country: None (occurrence: None)
  Receive Date: 20110228
  Receipt Date: 20110216
  Transmission Date: 20110831
  Serious: Yes (Other)
  Sender: FDA-Public Use
  Company Number: PHHY2011DE12743

PATIENT
  Age: 70 Year
  Sex: Female

DRUGS (3)
  1. OMEPRAZOLE [Concomitant]
     Indication: GASTRITIS
  2. SERTRALINE HYDROCHLORIDE [Concomitant]
     Indication: DEPRESSION
  3. SIMVASTATIN [Suspect]

REACTIONS (6)
  - SKIN LESION [None]
  - SKIN PLAQUE [None]
  - HYPERKERATOSIS [None]
  - CUTANEOUS LUPUS ERYTHEMATOSUS [None]
  - RASH MACULAR [None]
  - PAPULE [None]
